FAERS Safety Report 5156140-5 (Version None)
Quarter: 2006Q4

REPORT INFORMATION
  Report Type: 
  Country: None (occurrence: None)
  Receive Date: 20061122
  Receipt Date: 20061017
  Transmission Date: 20070319
  Serious: Yes (Other)
  Sender: FDA-Public Use
  Company Number: PHHO2006GB17294

PATIENT

DRUGS (1)
  1. ZOLEDRONIC ACID V SODIUM CLODRONATE [Suspect]
     Indication: MULTIPLE MYELOMA
     Dosage: 4MG
     Route: 042

REACTIONS (1)
  - OSTEONECROSIS [None]
